FAERS Safety Report 8594053-7 (Version None)
Quarter: 2012Q3

REPORT INFORMATION
  Report Type: 
  Country: None (occurrence: None)
  Receive Date: 20120814
  Receipt Date: 20120808
  Transmission Date: 20120928
  Serious: Yes (Other)
  Sender: FDA-Public Use
  Company Number: PHHY2012JP068536

PATIENT
  Age: 76 Year
  Sex: Male

DRUGS (9)
  1. ACYCLOVIR [Concomitant]
     Indication: ENCEPHALITIS HERPES
     Route: 042
  2. ROPINIROLE [Suspect]
     Dosage: 0.125 MG, UNK
     Route: 048
  3. AMANTADINE HCL [Concomitant]
  4. DIAZEPAM [Concomitant]
  5. ROPINIROLE [Suspect]
     Dosage: 0.75 MG, UNK
     Route: 048
  6. ROPINIROLE [Suspect]
     Dosage: 0.25 MG, UNK
     Route: 048
  7. CLONAZEPAM [Concomitant]
  8. ROPINIROLE [Suspect]
     Indication: APATHY
     Dosage: 0.25 MG, UNK
     Route: 048
  9. PHENYTOIN [Concomitant]

REACTIONS (5)
  - AGGRESSION [None]
  - DELIRIUM [None]
  - SPEECH DISORDER [None]
  - APHASIA [None]
  - CRYING [None]
